FAERS Safety Report 4428295-9 (Version None)
Quarter: 2004Q3

REPORT INFORMATION
  Report Type: 
  Country: None (occurrence: None)
  Receive Date: 20040816
  Receipt Date: 20040816
  Transmission Date: 20050211
  Serious: Yes (Other)
  Sender: FDA-Public Use
  Company Number: None

PATIENT
  Age: 82 Year
  Sex: Male
  Weight: 72.5755 kg

DRUGS (2)
  1. PINDOLOL [Suspect]
     Indication: ARRHYTHMIA
     Dosage: 5 MGM BID
     Dates: start: 20040506
  2. PINDOLOL [Suspect]
     Indication: VENTRICULAR EXTRASYSTOLES
     Dosage: 5 MGM BID
     Dates: start: 20040506

REACTIONS (2)
  - ABDOMINAL PAIN [None]
  - MUSCLE CRAMP [None]
